FAERS Safety Report 5755868-3 (Version None)
Quarter: 2008Q2

REPORT INFORMATION
  Report Type: 
  Country: None (occurrence: None)
  Receive Date: 20080528
  Receipt Date: 20080514
  Transmission Date: 20081010
  Serious: Yes (Death)
  Sender: FDA-Public Use
  Company Number: 2008BI012657

PATIENT
  Age: 41 Year
  Sex: Female
  Weight: 42 kg

DRUGS (9)
  1. TYSABRI [Suspect]
     Indication: MULTIPLE SCLEROSIS
     Dosage: 300 MG;QM;IV
     Route: 042
     Dates: start: 20080110, end: 20080306
  2. CLONAZEPAM [Concomitant]
  3. DULCOLAX [Concomitant]
  4. EFFEXOR [Concomitant]
  5. SEROQUEL [Concomitant]
  6. BACLOFEN [Concomitant]
  7. MOTRIN [Concomitant]
  8. SENOKOT [Concomitant]
  9. OXYBUTYNIN CHLORIDE [Concomitant]

REACTIONS (1)
  - DEATH [None]
